FAERS Safety Report 25678449 (Version 3)
Quarter: 2025Q3

REPORT INFORMATION
  Report Type: Report from Study
  Country: KR (occurrence: KR)
  Receive Date: 20250813
  Receipt Date: 20250828
  Transmission Date: 20251021
  Serious: Yes (Death, Hospitalization, Other)
  Sender: ABBVIE
  Company Number: KR-ABBVIE-6412306

PATIENT
  Age: 65 Year
  Sex: Male
  Weight: 52 kg

DRUGS (34)
  1. VENCLEXTA [Suspect]
     Active Substance: VENETOCLAX
     Indication: Acute myeloid leukaemia
     Route: 048
     Dates: start: 20250207, end: 20250207
  2. VENCLEXTA [Suspect]
     Active Substance: VENETOCLAX
     Indication: Acute myeloid leukaemia
     Route: 048
     Dates: start: 20250209, end: 20250213
  3. VENCLEXTA [Suspect]
     Active Substance: VENETOCLAX
     Indication: Acute myeloid leukaemia
     Route: 048
     Dates: start: 20250208, end: 20250208
  4. VENCLEXTA [Suspect]
     Active Substance: VENETOCLAX
     Indication: Acute myeloid leukaemia
     Route: 048
     Dates: start: 20250206, end: 20250206
  5. VENCLEXTA [Suspect]
     Active Substance: VENETOCLAX
     Indication: Acute myeloid leukaemia
     Route: 048
     Dates: start: 20250219, end: 20250226
  6. VIDAZA [Concomitant]
     Active Substance: AZACITIDINE
     Indication: Acute myeloid leukaemia
     Route: 042
     Dates: start: 20250206, end: 20250212
  7. FREAMINE III NOS [Concomitant]
     Active Substance: AMINO ACIDS
     Indication: Nutritional supplementation
     Dosage: 10% (BAG)
     Route: 042
     Dates: start: 20250206, end: 20250228
  8. Fedulow [Concomitant]
     Indication: Prophylaxis
     Dosage: SUSPENSION
     Route: 048
     Dates: start: 20250106, end: 20250226
  9. Megace oral [Concomitant]
     Indication: Decreased appetite
     Dosage: SUSPENSION
     Route: 048
     Dates: start: 20250212, end: 20250216
  10. SMOFLIPID [Concomitant]
     Active Substance: FISH OIL\MEDIUM-CHAIN TRIGLYCERIDES\OLIVE OIL\SOYBEAN OIL
     Indication: Nutritional supplementation
     Dosage: 20%
     Route: 042
     Dates: start: 20250207, end: 20250227
  11. LASIX [Concomitant]
     Active Substance: FUROSEMIDE
     Indication: Oedema
     Route: 042
     Dates: start: 20250210, end: 20250227
  12. Ondant [Concomitant]
     Indication: Vomiting
     Dosage: 8 MG
     Route: 042
     Dates: start: 20250226, end: 20250226
  13. CEFTRIAXONE SODIUM [Concomitant]
     Active Substance: CEFTRIAXONE SODIUM
     Indication: Infection prophylaxis
     Dosage: TYPE (MAPSET KIT) 2G
     Route: 042
     Dates: start: 20250214, end: 20250220
  14. Gcc human varicella immunoglobulin [Concomitant]
     Indication: Infection prophylaxis
     Dosage: UNIT DOSE: 1 VIAL
     Route: 058
     Dates: start: 20250206, end: 20250206
  15. Meckool [Concomitant]
     Indication: Nausea
     Route: 042
     Dates: start: 20250223, end: 20250228
  16. NOXAFIL [Concomitant]
     Active Substance: POSACONAZOLE
     Indication: Infection prophylaxis
     Dosage: GASTRO RESISTANT 100MG
     Route: 048
     Dates: start: 20250206, end: 20250225
  17. Eperinal sr [Concomitant]
     Indication: Arthralgia
     Route: 048
     Dates: start: 20250226, end: 20250226
  18. Gcc human varicella immunoglobulin [Concomitant]
     Indication: Infection prophylaxis
     Dosage: UNIT DOSE: 1 VIAL
     Route: 058
     Dates: start: 20250206, end: 20250206
  19. LENOGRASTIM [Concomitant]
     Active Substance: LENOGRASTIM
     Indication: Neutropenia
     Dosage: UNIT DOSE: 1 VIAL, 250MCG
     Route: 042
     Dates: start: 20250215, end: 20250228
  20. Dulackhan easy [Concomitant]
     Indication: Constipation
     Route: 048
     Dates: start: 20250208, end: 20250209
  21. Tazoperan [Concomitant]
     Indication: Pyrexia
     Dosage: UNIT DOSE: 1 VIAL, 4.5G
     Route: 042
     Dates: start: 20250226, end: 20250226
  22. Peniramin [Concomitant]
     Indication: Premedication
     Route: 042
     Dates: start: 20250226, end: 20250227
  23. POTASSIUM CHLORIDE [Concomitant]
     Active Substance: POTASSIUM CHLORIDE
     Indication: Hypokalaemia
     Dosage: 20 ML
     Route: 042
     Dates: start: 20250211, end: 20250211
  24. Jeil Dexamethasone [Concomitant]
     Indication: Premedication
     Dosage: 1 ML
     Route: 042
     Dates: start: 20250226, end: 20250227
  25. Paramacet SEMI [Concomitant]
     Indication: Arthralgia
     Route: 048
     Dates: start: 20250226, end: 20250226
  26. Trolac [Concomitant]
     Indication: Pyrexia
     Route: 042
     Dates: start: 20250214, end: 20250214
  27. Trolac [Concomitant]
     Indication: Pyrexia
     Route: 042
     Dates: start: 20250210, end: 20250210
  28. Trolac [Concomitant]
     Indication: Pyrexia
     Route: 042
     Dates: start: 20250226, end: 20250226
  29. LEVOFLOXACIN [Concomitant]
     Active Substance: LEVOFLOXACIN
     Indication: Infection prophylaxis
     Dosage: 500 MG
     Route: 048
     Dates: start: 20250206, end: 20250225
  30. EPINEPHRINE [Concomitant]
     Active Substance: EPINEPHRINE
     Indication: Epistaxis
     Route: 061
     Dates: start: 20250211, end: 20250213
  31. Tranexamic acide [Concomitant]
     Indication: Haemorrhage prophylaxis
     Dosage: 500MG/5ML
     Route: 042
     Dates: start: 20250210, end: 20250227
  32. ALOXI [Concomitant]
     Active Substance: PALONOSETRON HYDROCHLORIDE
     Indication: Prophylaxis of nausea and vomiting
     Dosage: UNIT DOSE: 1 VIAL
     Route: 042
     Dates: start: 20250206, end: 20250212
  33. PROPACETAMOL HYDROCHLORIDE [Concomitant]
     Active Substance: PROPACETAMOL HYDROCHLORIDE
     Indication: Pyrexia
     Route: 042
     Dates: start: 20250209, end: 20250228
  34. Harmonilan [Concomitant]
     Indication: Nutritional supplementation
     Route: 048
     Dates: start: 20250206, end: 20250226

REACTIONS (2)
  - Septic shock [Fatal]
  - Pneumonia [Not Recovered/Not Resolved]

NARRATIVE: CASE EVENT DATE: 20250225
